FAERS Safety Report 11876347 (Version 1)
Quarter: 2015Q4

REPORT INFORMATION
  Report Type: Spontaneous
  Country: IT (occurrence: IT)
  Receive Date: 20151229
  Receipt Date: 20151229
  Transmission Date: 20160305
  Serious: Yes (Life-Threatening, Hospitalization)
  Sender: FDA-Public Use
  Company Number: IT-CORDEN PHARMA LATINA S.P.A.-IT-2015COR000260

PATIENT
  Age: 33 Year
  Sex: Male

DRUGS (4)
  1. MESNA. [Suspect]
     Active Substance: MESNA
     Indication: EWING^S SARCOMA
     Dosage: 2000 MG/M2, ON DAY 1
  2. CYCLOPHOSPHAMIDE. [Suspect]
     Active Substance: CYCLOPHOSPHAMIDE
     Indication: EWING^S SARCOMA
     Dosage: 1200 MG/M2, ON DAY 1 EVERY 21 DAYS
  3. ETOPOSIDE. [Suspect]
     Active Substance: ETOPOSIDE
     Indication: EWING^S SARCOMA
     Dosage: 150 MG/M2, DAYS 1-3 EVERY 21 DAYS
  4. GRANULOCYTE COLONY STIMULATING FACTOR [Concomitant]
     Active Substance: GRANULOCYTE COLONY-STIMULATING FACTOR NOS
     Indication: PROPHYLAXIS
     Dosage: UNK, 6 CYCLES

REACTIONS (1)
  - Febrile neutropenia [Recovered/Resolved]
